FAERS Safety Report 10869032 (Version 1)
Quarter: 2015Q1

REPORT INFORMATION
  Report Type: Spontaneous
  Country: GB (occurrence: GB)
  Receive Date: 20150225
  Receipt Date: 20150225
  Transmission Date: 20150721
  Serious: Yes (Hospitalization)
  Sender: FDA-Public Use
  Company Number: GB-ABBVIE-15P-167-1349876-00

PATIENT
  Age: 49 Year
  Sex: Female

DRUGS (8)
  1. CLARITHROMYCIN. [Suspect]
     Active Substance: CLARITHROMYCIN
     Indication: HELICOBACTER INFECTION
     Route: 065
  2. REFRESH CELLUVISC [Concomitant]
     Active Substance: CARBOXYMETHYLCELLULOSE SODIUM
     Indication: DRY EYE
     Dosage: EYE DROPS, AS NEEDED
     Route: 065
  3. CLARITHROMYCIN. [Interacting]
     Active Substance: CLARITHROMYCIN
     Indication: GASTRITIS
  4. LANSOPRAZOLE. [Interacting]
     Active Substance: LANSOPRAZOLE
     Indication: HELICOBACTER INFECTION
     Route: 065
  5. LACRILUBE [Concomitant]
     Indication: DRY EYE
     Dosage: EYE DROPS, AS NEEDED
     Route: 065
  6. AMOXICILLIN. [Interacting]
     Active Substance: AMOXICILLIN
     Indication: GASTRITIS
  7. LANSOPRAZOLE. [Interacting]
     Active Substance: LANSOPRAZOLE
     Indication: GASTRITIS
  8. AMOXICILLIN. [Interacting]
     Active Substance: AMOXICILLIN
     Indication: HELICOBACTER INFECTION
     Route: 065

REACTIONS (2)
  - Psychotic disorder [Recovered/Resolved]
  - Drug interaction [Recovered/Resolved]
